FAERS Safety Report 6056544-2 (Version None)
Quarter: 2009Q1

REPORT INFORMATION
  Report Type: 
  Country: None (occurrence: None)
  Receive Date: 20090129
  Receipt Date: 20090116
  Transmission Date: 20090719
  Serious: Yes (Other)
  Sender: FDA-Public Use
  Company Number: CA-ROCHE-606570

PATIENT
  Sex: Female
  Weight: 59.3 kg

DRUGS (8)
  1. PEG-INTERFERON ALFA 2A (RO 25-8310) [Suspect]
     Indication: HEPATITIS C
     Route: 058
     Dates: start: 20081105, end: 20090103
  2. RIBAVIRIN [Suspect]
     Indication: HEPATITIS C
     Dosage: TAKEN 3 TAB IN THE MORNING AND TWO IN THE EVENING
     Route: 048
     Dates: start: 20081105, end: 20090103
  3. AMITRIPTYLINE HCL [Concomitant]
  4. CYCLOBENZAPRINE HCL [Concomitant]
  5. ATENOLOL [Concomitant]
  6. AVALIDE [Concomitant]
  7. CODEINE SUL TAB [Concomitant]
  8. MORPHINE [Concomitant]

REACTIONS (5)
  - DIZZINESS [None]
  - HAEMOGLOBIN DECREASED [None]
  - MUSCULOSKELETAL DISORDER [None]
  - NAUSEA [None]
  - SPINAL COMPRESSION FRACTURE [None]
